FAERS Safety Report 4606226-6 (Version None)
Quarter: 2005Q1

REPORT INFORMATION
  Report Type: 
  Country: None (occurrence: None)
  Receive Date: 20050116
  Receipt Date: 20040624
  Transmission Date: 20050727
  Serious: No
  Sender: FDA-Public Use
  Company Number: K200400973

PATIENT
  Age: 2 Year
  Sex: Male
  Weight: 10.9 kg

DRUGS (1)
  1. EPIPEN JR. [Suspect]
     Indication: FOOD ALLERGY
     Dosage: 0.15 MG, SINGLE
     Dates: start: 20040609, end: 20040609

REACTIONS (2)
  - ACCIDENTAL EXPOSURE [None]
  - INJECTION SITE HAEMORRHAGE [None]
